FAERS Safety Report 10256120 (Version 2)
Quarter: 2014Q2

REPORT INFORMATION
  Report Type: Spontaneous
  Country: CA (occurrence: CA)
  Receive Date: 20140624
  Receipt Date: 20140625
  Transmission Date: 20141212
  Serious: Yes (Death, Hospitalization, Other)
  Sender: FDA-Public Use
  Company Number: CA-PFIZER INC-2014173343

PATIENT
  Age: 47 Year
  Sex: Female

DRUGS (12)
  1. MORPHINE SULFATE [Suspect]
     Dosage: 10 MG, UNK
     Dates: start: 20120607
  2. OXYNEO [Interacting]
     Dosage: UNK
  3. OXYCONTIN [Interacting]
     Dosage: UNK
  4. OXYCODONE [Interacting]
     Dosage: UNK
  5. DILAUDID [Interacting]
     Dosage: 2-4 MG, PRN
     Dates: end: 20120620
  6. ENDOCET [Interacting]
     Dosage: UNK
  7. FENTANYL [Interacting]
     Dosage: 75 MCG/HR, UNK
     Route: 062
     Dates: end: 20120620
  8. FENTANYL [Interacting]
     Dosage: 150 MCG/HR, UNK;
     Route: 062
     Dates: start: 20120620
  9. NICOTINE [Interacting]
     Dosage: UNK
  10. FLEXERIL [Interacting]
     Dosage: 40 MG, DAILY
  11. AMITRIPTYLINE [Interacting]
     Dosage: UNK
  12. NAPROX /00256202/ [Interacting]
     Dosage: UNK
     Route: 065

REACTIONS (25)
  - Overdose [Fatal]
  - Drug interaction [Fatal]
  - Cardiac death [Fatal]
  - Myocardial infarction [Fatal]
  - Respiratory arrest [Fatal]
  - Pulmonary oedema [Fatal]
  - Gastric dilatation [Unknown]
  - Infection [Unknown]
  - Intentional product misuse [Unknown]
  - Loss of consciousness [Unknown]
  - Mental impairment [Unknown]
  - Anxiety [Unknown]
  - Emotional disorder [Unknown]
  - Dysarthria [Unknown]
  - Gait disturbance [Unknown]
  - Functional gastrointestinal disorder [Unknown]
  - Tachycardia [Unknown]
  - Drug tolerance [Unknown]
  - Malaise [Unknown]
  - Nausea [Unknown]
  - Sedation [Unknown]
  - Somnolence [Unknown]
  - Dizziness [Unknown]
  - Depressed mood [Unknown]
  - Paraesthesia [Unknown]
